FAERS Safety Report 21571937 (Version 1)
Quarter: 2022Q4

REPORT INFORMATION
  Report Type: Spontaneous
  Country: IT (occurrence: IT)
  Receive Date: 20221109
  Receipt Date: 20221109
  Transmission Date: 20230113
  Serious: Yes (Hospitalization)
  Sender: FDA-Public Use
  Company Number: IT-MYLANLABS-2022M1123524

PATIENT
  Age: 6 Decade
  Sex: Male

DRUGS (11)
  1. HYDROCORTISONE [Suspect]
     Active Substance: HYDROCORTISONE
     Indication: Hypotension
     Dosage: UNK
     Route: 065
     Dates: start: 2012
  2. HYDROCORTISONE [Suspect]
     Active Substance: HYDROCORTISONE
     Indication: Presyncope
  3. HYDROCORTISONE [Suspect]
     Active Substance: HYDROCORTISONE
     Indication: Abdominal pain
  4. POLYGELINE [Suspect]
     Active Substance: POLYGELINE
     Indication: Hypotension
     Dosage: UNK
     Route: 065
     Dates: start: 2012
  5. POLYGELINE [Suspect]
     Active Substance: POLYGELINE
     Indication: Presyncope
  6. POLYGELINE [Suspect]
     Active Substance: POLYGELINE
     Indication: Abdominal pain
  7. LENOGRASTIM [Concomitant]
     Active Substance: LENOGRASTIM
     Indication: Neutropenia
     Dosage: 263 MICROGRAM
     Route: 065
     Dates: start: 201210
  8. ETOPOSIDE [Concomitant]
     Active Substance: ETOPOSIDE
     Indication: Haematopoietic stem cell mobilisation
     Dosage: UNK; AS HIGH-DOSE CONDITIONING FEAM REGIMEN
     Route: 065
     Dates: start: 201210
  9. FOTEMUSTINE [Concomitant]
     Active Substance: FOTEMUSTINE
     Indication: Haematopoietic stem cell mobilisation
     Dosage: UNK; AS HIGH-DOSE CONDITIONING FEAM REGIMEN
     Route: 065
     Dates: start: 201210
  10. CYTARABINE [Concomitant]
     Active Substance: CYTARABINE
     Indication: Haematopoietic stem cell mobilisation
     Dosage: UNK; AS HIGH-DOSE CONDITIONING FEAM REGIMEN
     Route: 065
     Dates: start: 201210
  11. MELPHALAN [Concomitant]
     Active Substance: MELPHALAN
     Indication: Haematopoietic stem cell mobilisation
     Dosage: UNK; AS HIGH-DOSE CONDITIONING FEAM REGIMEN
     Route: 065
     Dates: start: 201210

REACTIONS (1)
  - Drug ineffective [Unknown]

NARRATIVE: CASE EVENT DATE: 20120101
